FAERS Safety Report 4322500-5 (Version None)
Quarter: 2004Q1

REPORT INFORMATION
  Report Type: 
  Country: None (occurrence: None)
  Receive Date: 20040323
  Receipt Date: 20040323
  Transmission Date: 20041129
  Serious: Yes (Life-Threatening)
  Sender: FDA-Public Use
  Company Number: None

PATIENT
  Age: 23 Year
  Sex: Female
  Weight: 68.0396 kg

DRUGS (1)
  1. ZOLOFT [Suspect]
     Indication: POSTPARTUM DEPRESSION
     Dosage: 2 TIMES ORAL
     Route: 048
     Dates: start: 20000310, end: 20001210

REACTIONS (3)
  - FEELING ABNORMAL [None]
  - LETHARGY [None]
  - SUICIDAL IDEATION [None]
